FAERS Safety Report 9436059 (Version 1)
Quarter: 2013Q3

REPORT INFORMATION
  Report Type: Spontaneous
  Country: DE (occurrence: DE)
  Receive Date: 20130801
  Receipt Date: 20130801
  Transmission Date: 20140515
  Serious: Yes (Hospitalization, Disabling, Congenital Anomaly)
  Sender: FDA-Public Use
  Company Number: GXKR2013DE002536

PATIENT
  Sex: 0

DRUGS (5)
  1. ROXITHROMYCIN [Suspect]
     Dosage: MATERNAL DOSE: 300 [MG/D ]
     Route: 064
     Dates: start: 20070727, end: 20070802
  2. BUDES N [Suspect]
     Dosage: MATERNAL DOSE: 400 UG, BID
     Route: 064
     Dates: start: 20070727, end: 20070802
  3. SALBUTAMOL [Suspect]
     Route: 064
     Dates: start: 20070727, end: 20070802
  4. ZOLOFT [Suspect]
     Dosage: MATERNAL DOSE: GW 0-5: 50MG/D, GW 5-10: 25MG/D, AFTERWARDS (UNTIL GW 16) AGAIN 50 MG/D
     Route: 064
  5. FOLIO [Concomitant]
     Dosage: MATERNAL DOSE: 0.4 [MG/D ] (GW 5 TO GW 38.3)
     Route: 064

REACTIONS (7)
  - Macrocephaly [Unknown]
  - Cryptorchism [Recovered/Resolved with Sequelae]
  - Talipes [Unknown]
  - Developmental hip dysplasia [Not Recovered/Not Resolved]
  - Limb hypoplasia congenital [Not Recovered/Not Resolved]
  - Congenital multiplex arthrogryposis [Not Recovered/Not Resolved]
  - Strabismus [Recovered/Resolved with Sequelae]
